FAERS Safety Report 7526241-2 (Version None)
Quarter: 2011Q2

REPORT INFORMATION
  Report Type: 
  Country: None (occurrence: None)
  Receive Date: 20110606
  Receipt Date: 20110531
  Transmission Date: 20111010
  Serious: Yes (Death, Other)
  Sender: FDA-Public Use
  Company Number: PHHY2011IE47433

PATIENT
  Age: 54 Year
  Sex: Male

DRUGS (8)
  1. ATORVASTATIN [Interacting]
     Dosage: 10 MG/DAY
  2. ASPIRIN [Interacting]
  3. FUSIDIC ACID [Interacting]
     Dosage: 500 MG, Q8H
     Route: 042
  4. LANSOPRAZOLE [Suspect]
  5. ATORVASTATIN [Interacting]
     Dosage: 80 MG/DAY
  6. BUPRENORPHINE [Interacting]
     Indication: PAIN
     Route: 061
  7. DOMPERIDONE [Interacting]
  8. CLOPIDOGREL [Interacting]

REACTIONS (10)
  - METABOLIC DISORDER [None]
  - RESPIRATORY FAILURE [None]
  - RENAL FAILURE ACUTE [None]
  - MYALGIA [None]
  - ANURIA [None]
  - SEPTIC SHOCK [None]
  - MYOPATHY [None]
  - RHABDOMYOLYSIS [None]
  - CARDIAC ARREST [None]
  - MUSCULAR WEAKNESS [None]
